FAERS Safety Report 7285827-3 (Version None)
Quarter: 2011Q1

REPORT INFORMATION
  Report Type: 
  Country: None (occurrence: None)
  Receive Date: 20110210
  Receipt Date: 20110201
  Transmission Date: 20110831
  Serious: Yes (Hospitalization)
  Sender: FDA-Public Use
  Company Number: NL-MEDIMMUNE-MEDI-0012127

PATIENT
  Sex: Male
  Weight: 10.11 kg

DRUGS (4)
  1. SYNAGIS [Suspect]
     Route: 030
     Dates: start: 20101004, end: 20101129
  2. SYNAGIS [Suspect]
     Route: 030
     Dates: start: 20101227, end: 20110124
  3. FUROSEMIDE [Concomitant]
  4. ACENOCOUMAROL [Concomitant]
     Indication: ANTICOAGULANT THERAPY

REACTIONS (5)
  - HAEMOGLOBIN DECREASED [None]
  - PYREXIA [None]
  - RESPIRATORY TRACT INFECTION [None]
  - INFANTILE SPITTING UP [None]
  - GASTROINTESTINAL TUBE INSERTION [None]
